FAERS Safety Report 8934626 (Version 1)
Quarter: 2012Q4

REPORT INFORMATION
  Report Type: 
  Country: US (occurrence: US)
  Receive Date: 20121129
  Receipt Date: 20121129
  Transmission Date: 20130627
  Serious: Yes (Other)
  Sender: FDA-Public Use
  Company Number: US-ELI_LILLY_AND_COMPANY-US201211007442

PATIENT

DRUGS (3)
  1. GEMCITABINE HYDROCHLORIDE [Suspect]
     Indication: ADENOCARCINOMA PANCREAS
     Dosage: 750 mg/m2, other
  2. TAXOTERE [Concomitant]
     Indication: ADENOCARCINOMA PANCREAS
     Dosage: 30 mg/m2, other
  3. CAPECITABINE [Concomitant]
     Indication: ADENOCARCINOMA PANCREAS
     Dosage: 1500 UNK, UNK

REACTIONS (1)
  - Gastrointestinal toxicity [Unknown]
